FAERS Safety Report 10027639 (Version 1)
Quarter: 2014Q1

REPORT INFORMATION
  Report Type: Spontaneous
  Country: GB (occurrence: None)
  Receive Date: 20140318
  Receipt Date: 20140318
  Transmission Date: 20141002
  Serious: Yes (Other)
  Sender: FDA-Public Use
  Company Number: FK201400843

PATIENT
  Age: 48 Year
  Sex: Female

DRUGS (2)
  1. CARBOPLATIN [Suspect]
     Indication: OVARIAN ENDOMETRIOID CARCINOMA
  2. PACLITAXEL [Suspect]
     Indication: OVARIAN ENDOMETRIOID CARCINOMA

REACTIONS (5)
  - Thrombocytopenia [None]
  - Neutropenia [None]
  - Hypersensitivity [None]
  - Optic disc disorder [None]
  - Papilloedema [None]
